FAERS Safety Report 6189208-5 (Version None)
Quarter: 2009Q2

REPORT INFORMATION
  Report Type: 
  Country: None (occurrence: None)
  Receive Date: 20090513
  Receipt Date: 20090428
  Transmission Date: 20091009
  Serious: Yes (Other)
  Sender: FDA-Public Use
  Company Number: ES-GENENTECH-280935

PATIENT
  Sex: Male

DRUGS (2)
  1. MABTHERA [Suspect]
     Indication: B-CELL LYMPHOMA
     Dosage: 200 MG/M2, Q2W
     Route: 042
     Dates: start: 20090331, end: 20090401
  2. MABTHERA [Suspect]
     Dosage: 100 MG/M2, UNK
     Route: 042
     Dates: start: 20090401, end: 20090401

REACTIONS (3)
  - FEELING HOT [None]
  - INFLAMMATION [None]
  - LYMPHADENOPATHY [None]
